FAERS Safety Report 6310479-6 (Version None)
Quarter: 2009Q3

REPORT INFORMATION
  Report Type: 
  Country: None (occurrence: None)
  Receive Date: 20090811
  Receipt Date: 20090623
  Transmission Date: 20100115
  Serious: No
  Sender: FDA-Public Use
  Company Number: 1000006995

PATIENT
  Age: 74 Year
  Sex: Female

DRUGS (5)
  1. SAVELLA [Suspect]
     Indication: FIBROMYALGIA
     Dosage: 12.5 MG (12.5 MG, 1 IN 1 D), ORAL; 25 MG (12.5 MG,2 IN 1 D), ORAL; 50 MG (25 MG, 2 IN 1 D) , ORAL
     Route: 048
     Dates: start: 20090601, end: 20090601
  2. SAVELLA [Suspect]
     Indication: FIBROMYALGIA
     Dosage: 12.5 MG (12.5 MG, 1 IN 1 D), ORAL; 25 MG (12.5 MG,2 IN 1 D), ORAL; 50 MG (25 MG, 2 IN 1 D) , ORAL
     Route: 048
     Dates: start: 20090602, end: 20090603
  3. SAVELLA [Suspect]
     Indication: FIBROMYALGIA
     Dosage: 12.5 MG (12.5 MG, 1 IN 1 D), ORAL; 25 MG (12.5 MG,2 IN 1 D), ORAL; 50 MG (25 MG, 2 IN 1 D) , ORAL
     Route: 048
     Dates: start: 20090604, end: 20090607
  4. SAVELLA [Suspect]
     Indication: FIBROMYALGIA
     Dosage: 100 MG (50 MG, 2 IN 1 D), ORAL
     Route: 048
     Dates: start: 20090608, end: 20090615
  5. ULTRAM [Concomitant]

REACTIONS (3)
  - DEPRESSION [None]
  - NIGHT SWEATS [None]
  - RASH [None]
